FAERS Safety Report 15408754 (Version 3)
Quarter: 2020Q3

REPORT INFORMATION
  Report Type: Report from Study
  Country: CA (occurrence: CA)
  Receive Date: 20180920
  Receipt Date: 20200325
  Transmission Date: 20201104
  Serious: Yes (Hospitalization)
  Sender: FDA-Public Use
  Company Number: CA-ASTRAZENECA-2018SF17788

PATIENT
  Age: 76 Year
  Sex: Male

DRUGS (16)
  1. METOPROLOL. [Concomitant]
     Active Substance: METOPROLOL
     Route: 065
     Dates: start: 2012
  2. PRADAXA [Concomitant]
     Active Substance: DABIGATRAN ETEXILATE MESYLATE
     Route: 065
     Dates: start: 2015
  3. ROCALTROL [Concomitant]
     Active Substance: CALCITRIOL
     Route: 065
     Dates: start: 201712
  4. METOPROLOL. [Concomitant]
     Active Substance: METOPROLOL
     Route: 065
     Dates: start: 2012
  5. DURVALUMAB. [Suspect]
     Active Substance: DURVALUMAB
     Indication: HORMONE-REFRACTORY PROSTATE CANCER
     Route: 042
     Dates: start: 20180725, end: 20180725
  6. ONDANSETRON [Concomitant]
     Active Substance: ONDANSETRON
     Route: 065
     Dates: start: 201805
  7. TERAZOSIN [Concomitant]
     Active Substance: TERAZOSIN HYDROCHLORIDE
     Route: 065
     Dates: start: 2012
  8. CANNABIS OIL [Concomitant]
     Active Substance: CANNABIS SATIVA SEED OIL\HERBALS
     Route: 065
     Dates: start: 201802
  9. LEVOTHYROXINE. [Concomitant]
     Active Substance: LEVOTHYROXINE
     Route: 065
     Dates: start: 20180905
  10. CALCIUM CARBONATE. [Concomitant]
     Active Substance: CALCIUM CARBONATE
     Route: 065
     Dates: start: 201705
  11. ONDANSETRON [Concomitant]
     Active Substance: ONDANSETRON
     Route: 065
     Dates: start: 20180905
  12. IMODIUM [Concomitant]
     Active Substance: LOPERAMIDE HYDROCHLORIDE
     Route: 065
     Dates: start: 201805
  13. SODIUM CHLORIDE. [Concomitant]
     Active Substance: SODIUM CHLORIDE
     Route: 065
     Dates: start: 20180905
  14. TREMELIMUMAB. [Suspect]
     Active Substance: TREMELIMUMAB
     Indication: HORMONE-REFRACTORY PROSTATE CANCER
     Route: 042
     Dates: start: 20180725, end: 20180725
  15. ACETAMINOPHEN WITH TRAMADOL [Concomitant]
     Active Substance: ACETAMINOPHEN\TRAMADOL
     Route: 065
     Dates: start: 2016
  16. AMLODIPINE [Concomitant]
     Active Substance: AMLODIPINE BESYLATE
     Route: 065
     Dates: start: 2012

REACTIONS (1)
  - Colitis [Unknown]

NARRATIVE: CASE EVENT DATE: 20180911
